FAERS Safety Report 9324701 (Version 1)
Quarter: 2013Q2

REPORT INFORMATION
  Report Type: Spontaneous
  Country: CN (occurrence: CN)
  Receive Date: 20130603
  Receipt Date: 20130603
  Transmission Date: 20140414
  Serious: Yes (Other)
  Sender: FDA-Public Use
  Company Number: CN-GLAXOSMITHKLINE-B0895968A

PATIENT
  Age: 50 Year
  Sex: Male

DRUGS (2)
  1. SEROXAT [Suspect]
     Indication: DEPRESSION
     Dosage: 20MG PER DAY
     Route: 048
  2. DIAZEPAM [Concomitant]
     Indication: DEPRESSION
     Route: 048

REACTIONS (4)
  - Epilepsy [Recovered/Resolved]
  - Convulsion [Unknown]
  - Urinary incontinence [Unknown]
  - Bruxism [Unknown]
